FAERS Safety Report 8581852-0 (Version None)
Quarter: 2012Q3

REPORT INFORMATION
  Report Type: 
  Country: None (occurrence: None)
  Receive Date: 20120809
  Receipt Date: 20120801
  Transmission Date: 20120928
  Serious: Yes (Other)
  Sender: FDA-Public Use
  Company Number: JP-JNJFOC-20120802199

PATIENT
  Sex: Male
  Weight: 68 kg

DRUGS (3)
  1. RHEUMATREX [Suspect]
     Dates: end: 20120621
  2. SIMPONI [Suspect]
     Indication: RHEUMATOID ARTHRITIS
     Route: 058
     Dates: start: 20120607
  3. RHEUMATREX [Suspect]
     Indication: RHEUMATOID ARTHRITIS
     Dates: start: 20120622

REACTIONS (1)
  - HEPATIC FUNCTION ABNORMAL [None]
